FAERS Safety Report 5096379-0 (Version None)
Quarter: 2006Q3

REPORT INFORMATION
  Report Type: 
  Country: None (occurrence: None)
  Receive Date: 20060728
  Receipt Date: 20060511
  Transmission Date: 20061208
  Serious: No
  Sender: FDA-Public Use
  Company Number: COT_0524_2006

PATIENT
  Age: 40 Year
  Sex: Female
  Weight: 81.1939 kg

DRUGS (7)
  1. VENTAVIS [Suspect]
     Indication: PULMONARY HYPERTENSION
     Dosage: 5 MCG 6XD IH
     Dates: start: 20051213, end: 20060511
  2. ADVAIR DISKUS 100/50 [Concomitant]
  3. SILDENAFIL [Concomitant]
  4. ALBUTEROL [Concomitant]
  5. FERROUS SULFATE TAB [Concomitant]
  6. COUMADIN [Concomitant]
  7. PROTONIX [Concomitant]

REACTIONS (5)
  - COUGH [None]
  - DIZZINESS [None]
  - EAR DISCOMFORT [None]
  - HEADACHE [None]
  - PALPITATIONS [None]
